FAERS Safety Report 8110236-4 (Version None)
Quarter: 2012Q1

REPORT INFORMATION
  Report Type: 
  Country: None (occurrence: None)
  Receive Date: 20120202
  Receipt Date: 20120127
  Transmission Date: 20120608
  Serious: No
  Sender: FDA-Public Use
  Company Number: US-AMGEN-USASP2011066143

PATIENT
  Age: 56 Year
  Sex: Male
  Weight: 91.837 kg

DRUGS (3)
  1. ENBREL [Suspect]
     Indication: RHEUMATOID ARTHRITIS
     Dosage: 50 MG, QWK
     Route: 058
     Dates: start: 20030101
  2. METHOTREXATE [Concomitant]
     Dosage: 12.5 MG, UNK
  3. FOLIC ACID [Concomitant]
     Dosage: UNK

REACTIONS (10)
  - DRY SKIN [None]
  - ARTHRALGIA [None]
  - INJECTION SITE SWELLING [None]
  - RASH [None]
  - PARAESTHESIA [None]
  - INJECTION SITE EXTRAVASATION [None]
  - INJECTION SITE PAIN [None]
  - PAIN IN EXTREMITY [None]
  - HYPOAESTHESIA [None]
  - OEDEMA PERIPHERAL [None]
